FAERS Safety Report 25038104 (Version 2)
Quarter: 2025Q1

REPORT INFORMATION
  Report Type: Report from Study
  Country: US (occurrence: US)
  Receive Date: 20250304
  Receipt Date: 20250313
  Transmission Date: 20250409
  Serious: Yes (Other)
  Sender: SANOFI AVENTIS
  Company Number: US-SA-2025SA059943

PATIENT
  Age: 63 Year
  Sex: Male

DRUGS (1)
  1. ISATUXIMAB-IRFC [Suspect]
     Active Substance: ISATUXIMAB-IRFC
     Indication: Plasma cell myeloma
     Route: 042
     Dates: start: 20240304

REACTIONS (7)
  - Plasmacytoma [Recovering/Resolving]
  - Plasma cell myeloma [Unknown]
  - Myelosuppression [Recovering/Resolving]
  - Myelocyte count decreased [Recovering/Resolving]
  - Plasma cells increased [Recovering/Resolving]
  - Myelocyte percentage decreased [Unknown]
  - Lymphocyte percentage decreased [Unknown]
